FAERS Safety Report 14979432 (Version 1)
Quarter: 2018Q2

REPORT INFORMATION
  Report Type: Report from Study
  Country: FR (occurrence: FR)
  Receive Date: 20180606
  Receipt Date: 20180606
  Transmission Date: 20180711
  Serious: Yes (Hospitalization)
  Sender: FDA-Public Use
  Company Number: FR-PFIZER INC-2018224264

PATIENT
  Age: 68 Year
  Sex: Male

DRUGS (10)
  1. IRINOTECAN HCL [Suspect]
     Active Substance: IRINOTECAN HYDROCHLORIDE
     Dosage: 400 MG, CYCLIC
     Route: 041
     Dates: start: 20151120, end: 20151120
  2. LEUCOVORIN /00566701/ [Suspect]
     Active Substance: LEUCOVORIN
     Indication: COLORECTAL CANCER METASTATIC
     Dosage: 360 MG, CYCLIC
     Route: 041
     Dates: start: 20151204, end: 20151204
  3. FLUOROURACIL. [Suspect]
     Active Substance: FLUOROURACIL
     Indication: COLORECTAL CANCER METASTATIC
     Dosage: 4800 MG, CYCLIC
     Route: 041
     Dates: start: 20151120, end: 20151120
  4. FLUOROURACIL. [Suspect]
     Active Substance: FLUOROURACIL
     Dosage: 800 MG, CYCLIC
     Route: 040
     Dates: start: 20151120, end: 20151120
  5. ZALTRAP [Suspect]
     Active Substance: ZIV-AFLIBERCEPT
     Dosage: 360 MG, CYCLIC
     Route: 041
     Dates: start: 20151120, end: 20151120
  6. LEUCOVORIN /00566701/ [Suspect]
     Active Substance: LEUCOVORIN
     Dosage: 360 MG, CYCLIC
     Route: 041
     Dates: start: 20151120, end: 20151120
  7. FLUOROURACIL. [Suspect]
     Active Substance: FLUOROURACIL
     Dosage: 4800 MG, CYCLIC
     Route: 041
     Dates: start: 20151204, end: 20151204
  8. FLUOROURACIL. [Suspect]
     Active Substance: FLUOROURACIL
     Dosage: 800 MG, CYCLIC
     Route: 040
     Dates: start: 20151204, end: 20151204
  9. IRINOTECAN HCL [Suspect]
     Active Substance: IRINOTECAN HYDROCHLORIDE
     Indication: COLORECTAL CANCER METASTATIC
     Dosage: 400 MG, CYCLIC
     Route: 041
     Dates: start: 20151204, end: 20151204
  10. ZALTRAP [Suspect]
     Active Substance: ZIV-AFLIBERCEPT
     Indication: COLORECTAL CANCER METASTATIC
     Dosage: 360 MG, CYCLIC
     Route: 041
     Dates: start: 20151204, end: 20151204

REACTIONS (2)
  - Gastrointestinal motility disorder [Recovered/Resolved]
  - Stomatitis [Recovered/Resolved]

NARRATIVE: CASE EVENT DATE: 20151207
